FAERS Safety Report 4956476-4 (Version None)
Quarter: 2006Q1

REPORT INFORMATION
  Report Type: 
  Country: None (occurrence: None)
  Receive Date: 20060329
  Receipt Date: 20060322
  Transmission Date: 20060701
  Serious: Yes (Other)
  Sender: FDA-Public Use
  Company Number: LB-BRISTOL-MYERS SQUIBB COMPANY-13323324

PATIENT
  Age: 75 Year
  Sex: Male

DRUGS (2)
  1. TEQUIN [Suspect]
     Indication: LUNG INFECTION
     Route: 042
  2. CORTICOID [Concomitant]

REACTIONS (1)
  - HYPERGLYCAEMIA [None]
